FAERS Safety Report 14252978 (Version 2)
Quarter: 2018Q1

REPORT INFORMATION
  Report Type: Spontaneous
  Country: BE (occurrence: BE)
  Receive Date: 20171205
  Receipt Date: 20180116
  Transmission Date: 20180508
  Serious: No
  Sender: FDA-Public Use
  Company Number: BE-ASTRAZENECA-2017SF22494

PATIENT
  Age: 71 Year
  Sex: Female

DRUGS (8)
  1. SERTRALINE HYDROCHLORIDE. [Suspect]
     Active Substance: SERTRALINE HYDROCHLORIDE
     Indication: ANXIETY
     Dosage: APOTEX, 50 MG
     Route: 065
  2. LORMETAZEPAM [Concomitant]
     Active Substance: LORMETAZEPAM
     Indication: DEPRESSION
  3. RISPERIDONE. [Concomitant]
     Active Substance: RISPERIDONE
     Indication: PSYCHOTIC SYMPTOM
  4. SERTRALINE HYDROCHLORIDE. [Suspect]
     Active Substance: SERTRALINE HYDROCHLORIDE
     Indication: DEPRESSION
     Dosage: APOTEX, 50 MG
     Route: 065
  5. LORMETAZEPAM [Concomitant]
     Active Substance: LORMETAZEPAM
     Indication: DECREASED APPETITE
  6. QUETIAPINE FUMARATE. [Suspect]
     Active Substance: QUETIAPINE FUMARATE
     Indication: SOMATIC DELUSION
     Dosage: NON-AZ PRODUCT, 100 MG
     Route: 065
  7. SERTRALINE HYDROCHLORIDE. [Suspect]
     Active Substance: SERTRALINE HYDROCHLORIDE
     Indication: DEPRESSION
     Dosage: APOTEX, 200 MG
     Route: 065
  8. SERTRALINE HYDROCHLORIDE. [Suspect]
     Active Substance: SERTRALINE HYDROCHLORIDE
     Indication: ANXIETY
     Dosage: APOTEX, 200 MG
     Route: 065

REACTIONS (2)
  - Somatic delusion [Recovering/Resolving]
  - Sedation complication [Unknown]
